FAERS Safety Report 5293732-7 (Version None)
Quarter: 2007Q2

REPORT INFORMATION
  Report Type: 
  Country: None (occurrence: None)
  Receive Date: 20070405
  Receipt Date: 20070321
  Transmission Date: 20071010
  Serious: Yes (Hospitalization)
  Sender: FDA-Public Use
  Company Number: 109

PATIENT
  Age: 43 Year
  Sex: Female

DRUGS (1)
  1. CLOZAPINE [Suspect]
     Indication: SCHIZOAFFECTIVE DISORDER
     Dosage: 300 MG PO DAILY
     Route: 048

REACTIONS (9)
  - ABDOMINAL DISTENSION [None]
  - ABDOMINAL PAIN UPPER [None]
  - ASCITES [None]
  - EOSINOPHILIA [None]
  - HEART RATE INCREASED [None]
  - LIVER DISORDER [None]
  - PLEURAL EFFUSION [None]
  - PYREXIA [None]
  - TENDERNESS [None]
